FAERS Safety Report 19122087 (Version 2)
Quarter: 2021Q2

REPORT INFORMATION
  Report Type: Spontaneous
  Country: FR (occurrence: FR)
  Receive Date: 20210412
  Receipt Date: 20210514
  Transmission Date: 20210717
  Serious: Yes (Life-Threatening, Hospitalization, Disabling)
  Sender: FDA-Public Use
  Company Number: FR-BAYER-2021-118736

PATIENT
  Age: 54 Year
  Sex: Male
  Weight: 82 kg

DRUGS (15)
  1. VANCOMYCIN [Concomitant]
     Active Substance: VANCOMYCIN
     Indication: INFECTION PROPHYLAXIS
  2. APROTININ [Suspect]
     Active Substance: APROTININ
     Indication: HEART TRANSPLANT
     Dosage: 4.8 MEGA?INTERNATIONAL
     Route: 042
     Dates: start: 20210315, end: 20210315
  3. ATRACURIUM [Concomitant]
     Active Substance: ATRACURIUM
     Indication: ANAESTHESIA
  4. SUFENTANIL [Concomitant]
     Active Substance: SUFENTANIL
     Indication: ANAESTHESIA
  5. PROTAMINE [Concomitant]
     Active Substance: PROTAMINE
  6. PROPOFOL. [Concomitant]
     Active Substance: PROPOFOL
     Indication: ANAESTHESIA
     Dosage: UNK
     Route: 065
  7. DOBUTAMINE [Concomitant]
     Active Substance: DOBUTAMINE HYDROCHLORIDE
  8. NEFOPAM [Concomitant]
     Active Substance: NEFOPAM
     Indication: ANALGESIC THERAPY
  9. TRAMADOL. [Concomitant]
     Active Substance: TRAMADOL
     Indication: ANALGESIC THERAPY
  10. HEPARIN [Concomitant]
     Active Substance: HEPARIN SODIUM
     Indication: PRODUCT USED FOR UNKNOWN INDICATION
     Dosage: UNK
     Route: 065
  11. NORADRENALINE HYDROCHLORIDE [Concomitant]
     Active Substance: NOREPINEPHRINE HYDROCHLORIDE, (+/-)-
     Indication: PRODUCT USED FOR UNKNOWN INDICATION
     Dosage: UNK
     Route: 065
  12. MIDAZOLAM. [Concomitant]
     Active Substance: MIDAZOLAM
     Indication: ANAESTHESIA
  13. CEFAZOLIN [Concomitant]
     Active Substance: CEFAZOLIN
     Indication: INFECTION PROPHYLAXIS
  14. PARACETAMOL [Concomitant]
     Active Substance: ACETAMINOPHEN
     Indication: ANALGESIC THERAPY
  15. KETAMIN [KETAMINE] [Concomitant]
     Indication: ANALGESIC THERAPY

REACTIONS (3)
  - Contraindicated product administered [Unknown]
  - Cerebral infarction [Not Recovered/Not Resolved]
  - Product use in unapproved indication [Unknown]

NARRATIVE: CASE EVENT DATE: 20210315
